FAERS Safety Report 9098648 (Version 1)
Quarter: 2013Q1

REPORT INFORMATION
  Report Type: Spontaneous
  Country: GB (occurrence: GB)
  Receive Date: 20130214
  Receipt Date: 20130214
  Transmission Date: 20140127
  Serious: Yes (Other)
  Sender: FDA-Public Use
  Company Number: GB-NICOBRDEVP-2013-02234

PATIENT
  Age: 78 Year
  Sex: Male

DRUGS (7)
  1. SILDENAFIL (UNKNOWN) [Suspect]
     Indication: PULMONARY HYPERTENSION
     Dosage: 1MG/H ON CONTINUOUS INFUSION
     Route: 042
     Dates: start: 20120606, end: 20120606
  2. SILDENAFIL (UNKNOWN) [Suspect]
     Indication: CARDIAC DISORDER
     Dosage: UNK
     Route: 065
  3. ADRENALINE                         /00003901/ [Concomitant]
     Indication: CARDIAC OUTPUT
     Dosage: 0.05 MG/M2
     Route: 042
     Dates: start: 20120530
  4. AMIODARONE [Concomitant]
     Indication: ARRHYTHMIA
     Dosage: UNK UNK, UNKNOWN
     Route: 042
     Dates: start: 20120530
  5. NORADRENALINE                      /00127501/ [Concomitant]
     Indication: HYPOTENSION
     Dosage: 0.07 MG/M2
     Route: 042
     Dates: start: 20120530
  6. LEVOSIMENDAN [Concomitant]
     Indication: PRODUCT USED FOR UNKNOWN INDICATION
     Dosage: 0.1 UG/M2
     Dates: start: 20120604, end: 20120606
  7. INOMAX [Concomitant]
     Indication: PRODUCT USED FOR UNKNOWN INDICATION
     Dosage: 10
     Route: 055
     Dates: start: 20120531, end: 20120608

REACTIONS (3)
  - Hypotension [Recovered/Resolved]
  - Renal failure [Unknown]
  - Cardiac failure [Unknown]
